FAERS Safety Report 9537295 (Version 1)
Quarter: 2013Q3

REPORT INFORMATION
  Report Type: Report from Study
  Country: MX (occurrence: MX)
  Receive Date: 20130919
  Receipt Date: 20130919
  Transmission Date: 20140515
  Serious: Yes (Other)
  Sender: FDA-Public Use
  Company Number: PHHY2013MX103695

PATIENT
  Age: 63 Year
  Sex: Male

DRUGS (13)
  1. MYFORTIC [Suspect]
     Indication: RENAL TRANSPLANT
     Dosage: 180 MG, UNK
     Route: 048
  2. EXFORGE HCT [Suspect]
     Indication: HYPERTENSION
     Dosage: 1 DF, DAILY
  3. RAPAMUNE [Concomitant]
     Dosage: UNK UKN, UNK
  4. METICORTEN [Concomitant]
     Dosage: UNK UKN, UNK
  5. ZUNUN [Concomitant]
     Dosage: UNK UKN, UNK
  6. INSULIN DEGLUDEC [Concomitant]
     Dosage: UNK UKN, UNK
  7. TRADJENTA [Concomitant]
     Dosage: UNK UKN, UNK
  8. CILOPRIN [Concomitant]
     Dosage: UNK UKN, UNK
  9. ASPIRIN [Concomitant]
     Dosage: UNK UKN, UNK
  10. LIPITOR [Concomitant]
     Dosage: UNK UKN, UNK
  11. GAVINDO [Concomitant]
     Dosage: UNK UKN, UNK
  12. DALACIN [Concomitant]
     Dosage: UNK UKN, UNK
  13. GABAPENTIN [Concomitant]
     Dosage: UNK UKN, UNK

REACTIONS (14)
  - Gangrene [Unknown]
  - Cerebral atrophy [Not Recovered/Not Resolved]
  - Asphyxia [Not Recovered/Not Resolved]
  - Diabetes mellitus [Not Recovered/Not Resolved]
  - Nail disorder [Unknown]
  - Hypersomnia [Not Recovered/Not Resolved]
  - Depression [Not Recovered/Not Resolved]
  - Asthenia [Not Recovered/Not Resolved]
  - Haemorrhoids [Not Recovered/Not Resolved]
  - General physical health deterioration [Not Recovered/Not Resolved]
  - Gastric disorder [Not Recovered/Not Resolved]
  - Fatigue [Not Recovered/Not Resolved]
  - Hypertension [Not Recovered/Not Resolved]
  - Diarrhoea [Not Recovered/Not Resolved]
